FAERS Safety Report 4858015-5 (Version None)
Quarter: 2005Q4

REPORT INFORMATION
  Report Type: 
  Country: None (occurrence: None)
  Receive Date: 20051219
  Receipt Date: 20050429
  Transmission Date: 20060501
  Serious: No
  Sender: FDA-Public Use
  Company Number: US-GLAXOSMITHKLINE-A0556400A

PATIENT
  Age: 53 Year
  Sex: Female

DRUGS (2)
  1. EQUATE NTS 21MG [Suspect]
     Dates: start: 20050424
  2. BLOOD PRESSURE MEDICATION [Concomitant]

REACTIONS (3)
  - APPLICATION SITE ERYTHEMA [None]
  - DIZZINESS [None]
  - INTENTIONAL DRUG MISUSE [None]
